FAERS Safety Report 12124536 (Version 1)
Quarter: 2016Q1

REPORT INFORMATION
  Report Type: Spontaneous
  Country: FR (occurrence: FR)
  Receive Date: 20160229
  Receipt Date: 20160229
  Transmission Date: 20160526
  Serious: Yes (Other)
  Sender: FDA-Public Use
  Company Number: FR-HOSPIRA-3178761

PATIENT
  Age: 18 Month
  Sex: Female

DRUGS (1)
  1. VINCRISTINE SULFATE. [Suspect]
     Active Substance: VINCRISTINE SULFATE
     Indication: ACUTE LYMPHOCYTIC LEUKAEMIA
     Dosage: IN 4 WEEKLY INFUSIONS DURING INDUCTION; CUMULATIVE DOSE: 8.84 MG/M^2
     Route: 041

REACTIONS (1)
  - Mononeuropathy multiplex [Recovered/Resolved]
